FAERS Safety Report 12591999 (Version 1)
Quarter: 2016Q3

REPORT INFORMATION
  Report Type: Spontaneous
  Country: US (occurrence: None)
  Receive Date: 20160725
  Receipt Date: 20160725
  Transmission Date: 20161109
  Serious: Yes (Hospitalization)
  Sender: FDA-Public Use
  Company Number: None

PATIENT
  Age: 60 Year
  Sex: Male
  Weight: 56.7 kg

DRUGS (21)
  1. NYSTATIN. [Concomitant]
     Active Substance: NYSTATIN
  2. N-ACETYL CYSTEINE [Concomitant]
  3. ALENDRONATE [Concomitant]
     Active Substance: ALENDRONATE SODIUM
  4. PRENATAL VITAMINS [Concomitant]
     Active Substance: VITAMINS
  5. CRESEMBA [Concomitant]
     Active Substance: ISAVUCONAZONIUM SULFATE
  6. SULFAMETHETHOXAZOLE TRIMETHOPRIM [Concomitant]
  7. METOPROLOL. [Concomitant]
     Active Substance: METOPROLOL
  8. OMEPRAZOLE. [Concomitant]
     Active Substance: OMEPRAZOLE
  9. DIOCTO [Suspect]
     Active Substance: DOCUSATE SODIUM
     Indication: CONSTIPATION
     Route: 048
     Dates: start: 20160222, end: 20160306
  10. PIPERACILLIN [Concomitant]
     Active Substance: PIPERACILLIN
  11. DIOCTO [Suspect]
     Active Substance: DOCUSATE SODIUM
     Indication: LUNG TRANSPLANT
     Route: 048
     Dates: start: 20160222, end: 20160306
  12. TACROLIMUS. [Concomitant]
     Active Substance: TACROLIMUS
  13. MAGNESIUM OXIDE. [Concomitant]
     Active Substance: MAGNESIUM OXIDE
  14. PREDNIDONE [Concomitant]
  15. VALCYTE [Concomitant]
     Active Substance: VALGANCICLOVIR HYDROCHLORIDE
  16. AZITHROMYCIN ANHYDROUS. [Concomitant]
     Active Substance: AZITHROMYCIN ANHYDROUS
  17. CALCIUM W/ VITQAMIN D [Concomitant]
  18. MYCOPHENOLATE MOTEFIL [Concomitant]
  19. PRAVASTATIN. [Concomitant]
     Active Substance: PRAVASTATIN
  20. ADVAIR HFA [Concomitant]
     Active Substance: FLUTICASONE PROPIONATE\SALMETEROL XINAFOATE
  21. TOBRAMYCIN. [Concomitant]
     Active Substance: TOBRAMYCIN

REACTIONS (2)
  - Product contamination microbial [None]
  - Burkholderia cepacia complex infection [None]

NARRATIVE: CASE EVENT DATE: 20160306
